FAERS Safety Report 5508571-9 (Version None)
Quarter: 2007Q4

REPORT INFORMATION
  Report Type: 
  Country: None (occurrence: None)
  Receive Date: 20071031
  Receipt Date: 20070716
  Transmission Date: 20080405
  Serious: No
  Sender: FDA-Public Use
  Company Number: 2007PV033150

PATIENT
  Age: 63 Year
  Sex: Female
  Weight: 106.1417 kg

DRUGS (5)
  1. SYMLIN [Suspect]
     Indication: TYPE 2 DIABETES MELLITUS
     Dosage: 90 MCG;SC    30 MCG;SC
     Route: 058
     Dates: start: 20070601, end: 20070601
  2. SYMLIN [Suspect]
     Indication: TYPE 2 DIABETES MELLITUS
     Dosage: 90 MCG;SC    30 MCG;SC
     Route: 058
     Dates: start: 20070601
  3. METFORMIN HCL [Concomitant]
  4. STARLIX [Concomitant]
  5. BYETTA [Concomitant]

REACTIONS (4)
  - ARTHRITIS [None]
  - BLOOD GLUCOSE INCREASED [None]
  - DRUG INEFFECTIVE [None]
  - WEIGHT INCREASED [None]
